FAERS Safety Report 6165487-5 (Version None)
Quarter: 2009Q2

REPORT INFORMATION
  Report Type: 
  Country: None (occurrence: None)
  Receive Date: 20090423
  Receipt Date: 20090421
  Transmission Date: 20091009
  Serious: Yes (Other)
  Sender: FDA-Public Use
  Company Number: US-BRISTOL-MYERS SQUIBB COMPANY-14464739

PATIENT
  Age: 41 Year
  Sex: Female

DRUGS (6)
  1. ABATACEPT [Suspect]
     Indication: PSORIATIC ARTHROPATHY
     Route: 042
     Dates: start: 20080327
  2. METFORMIN HCL [Concomitant]
     Route: 048
     Dates: start: 20050101
  3. LEVOTHYROXINE SODIUM [Concomitant]
     Route: 048
     Dates: start: 19930101
  4. AMOXICILLIN [Concomitant]
     Indication: SINUSITIS
     Route: 048
     Dates: start: 20080520, end: 20080526
  5. PHENERGAN W/ CODEINE [Concomitant]
     Indication: COUGH
     Route: 048
     Dates: start: 20080520, end: 20080526
  6. PREDNISONE [Concomitant]
     Indication: PSORIATIC ARTHROPATHY
     Route: 048
     Dates: start: 19980101

REACTIONS (1)
  - OSTEOMYELITIS [None]
